FAERS Safety Report 9963985 (Version 2)
Quarter: 2015Q1

REPORT INFORMATION
  Report Type: Spontaneous
  Country: JP (occurrence: JP)
  Receive Date: 20140305
  Receipt Date: 20150105
  Transmission Date: 20150721
  Serious: Yes (Other)
  Sender: FDA-Public Use
  Company Number: JP-TEVA-465897ISR

PATIENT
  Age: 48 Year
  Sex: Female
  Weight: 39 kg

DRUGS (20)
  1. PENTCILLIN [Concomitant]
     Active Substance: PIPERACILLIN SODIUM
     Dosage: 1 GRAM DAILY; ADMINISTERED WITH 3ML OF XYLOCAINE
     Route: 030
     Dates: start: 20130329, end: 20130402
  2. HYSERENIN TABLETS [Concomitant]
     Dosage: 3600 MILLIGRAM DAILY; IN THE MORNING, IN THE EVENING, AND AT BEDTIME
     Route: 048
  3. MUCODYNE [Concomitant]
     Active Substance: CARBOCYSTEINE
     Dosage: 3000 MILLIGRAM DAILY; IN THE MORNING, IN THE EVENING, AND AT BED TIMES
     Route: 048
  4. XYLOCAINE [Concomitant]
     Active Substance: LIDOCAINE HYDROCHLORIDE
     Indication: INFECTION
     Dosage: 6 ML DAILY;
     Route: 030
     Dates: start: 20130319, end: 20130328
  5. XYLOCAINE [Concomitant]
     Active Substance: LIDOCAINE HYDROCHLORIDE
     Dosage: 3 ML DAILY;
     Route: 030
     Dates: start: 20130410, end: 20130415
  6. ENTERONON-R [Concomitant]
     Active Substance: PROBIOTICS NOS
     Dosage: 4 GRAM DAILY;
     Route: 048
     Dates: start: 20130416, end: 20130423
  7. ALEVIATIN [Concomitant]
     Active Substance: PHENYTOIN SODIUM
     Dosage: 420 MILLIGRAM DAILY; IN THE MORNING AND EVENING
     Route: 048
  8. PULSMARIN A [Concomitant]
     Active Substance: AMBROXOL HYDROCHLORIDE
     Dosage: 81 MILLIGRAM DAILY; IN THE MORNING, IN THE EVENING, AND AT BED TIMES
     Route: 048
  9. KLARICID [Concomitant]
     Active Substance: CLARITHROMYCIN
     Dosage: 760 MILLIGRAM DAILY;
     Route: 048
     Dates: start: 20130416, end: 20130423
  10. CLINDAMYCIN [Suspect]
     Active Substance: CLINDAMYCIN\CLINDAMYCIN PHOSPHATE
     Route: 042
     Dates: start: 20130520, end: 20130520
  11. BENZALIN [Concomitant]
     Active Substance: NITRAZEPAM
     Dosage: 4 MILLIGRAM DAILY; IN THE EVENING
     Route: 048
  12. CLINDAMYCIN [Suspect]
     Active Substance: CLINDAMYCIN\CLINDAMYCIN PHOSPHATE
     Dosage: 900 MILLIGRAM DAILY;
     Route: 030
     Dates: start: 20130410, end: 20130415
  13. XYLOCAINE [Concomitant]
     Active Substance: LIDOCAINE HYDROCHLORIDE
     Dosage: 3 ML DAILY;
     Route: 030
     Dates: start: 20130329, end: 20130402
  14. CLINDAMYCIN [Suspect]
     Active Substance: CLINDAMYCIN\CLINDAMYCIN PHOSPHATE
     Indication: INFECTION
     Dosage: 450 MILLIGRAM DAILY;
     Route: 030
     Dates: start: 20130322, end: 20130404
  15. PENTCILLIN [Concomitant]
     Active Substance: PIPERACILLIN SODIUM
     Indication: INFECTION
     Dosage: 2 GRAM DAILY; ADMINISTERED WITH 3ML OF XYLOCAINE
     Route: 030
     Dates: start: 20130319, end: 20130328
  16. PENTCILLIN [Concomitant]
     Active Substance: PIPERACILLIN SODIUM
     Dosage: 1 GRAM DAILY; ADMINISTERED WITH 3ML OF XYLOCAINE
     Route: 030
     Dates: start: 20130410, end: 20130415
  17. PHENOBARBITAL. [Concomitant]
     Active Substance: PHENOBARBITAL
     Dosage: 240 MILLIGRAM DAILY; IN THE MORNING AND EVENING
     Route: 048
  18. DIAZEPAM. [Concomitant]
     Active Substance: DIAZEPAM
     Dosage: 1.5 MILLIGRAM DAILY; IN THE EVENING
     Route: 048
  19. MAGMITT TAB.330MG [Concomitant]
     Active Substance: MAGNESIUM OXIDE
     Dosage: 330 MILLIGRAM DAILY; IN THE EVENING
     Route: 048
  20. GASTER [Concomitant]
     Active Substance: FAMOTIDINE
     Dosage: 40 MILLIGRAM DAILY; IN THE MORNING AND EVENING
     Route: 048

REACTIONS (3)
  - Injection site necrosis [Recovered/Resolved]
  - Injection site erythema [Recovered/Resolved]
  - Injection site induration [Recovered/Resolved]

NARRATIVE: CASE EVENT DATE: 20130413
